FAERS Safety Report 9005209 (Version 1)
Quarter: 2013Q1

REPORT INFORMATION
  Report Type: Spontaneous
  Country: US (occurrence: None)
  Receive Date: 20130107
  Receipt Date: 20130107
  Transmission Date: 20140127
  Serious: Yes (Life-Threatening, Hospitalization, Disabling)
  Sender: FDA-Public Use
  Company Number: None

PATIENT
  Age: 28 Year
  Sex: Female
  Weight: 82.56 kg

DRUGS (1)
  1. INTRAUTERINE DEVICE [Suspect]
     Indication: CONTRACEPTION
     Dates: start: 20050303, end: 20090408

REACTIONS (4)
  - Device dislocation [None]
  - Intestinal perforation [None]
  - Large intestine perforation [None]
  - Scar [None]
